FAERS Safety Report 16583421 (Version 5)
Quarter: 2021Q3

REPORT INFORMATION
  Report Type: Spontaneous
  Country: US (occurrence: US)
  Receive Date: 20190717
  Receipt Date: 20210721
  Transmission Date: 20211014
  Serious: Yes (Other)
  Sender: FDA-Public Use
  Company Number: US-PFIZER INC-2019299585

PATIENT
  Age: 56 Year
  Sex: Female
  Weight: 67.12 kg

DRUGS (5)
  1. IBRANCE [Suspect]
     Active Substance: PALBOCICLIB
     Indication: BREAST CANCER METASTATIC
     Dosage: 125 MG, CYCLIC [D1?21 Q (EVERY) 28 DAYS]
     Route: 048
     Dates: start: 20190615, end: 2019
  2. FASLODEX [Concomitant]
     Active Substance: FULVESTRANT
     Indication: BREAST CANCER METASTATIC
     Dosage: UNK
     Dates: start: 202001
  3. IBRANCE [Suspect]
     Active Substance: PALBOCICLIB
     Dosage: 100 MG, CYCLIC (DAILY FOR 21 DAYS THEN 7 DAYS)
     Route: 048
     Dates: start: 20190615, end: 201906
  4. IBRANCE [Suspect]
     Active Substance: PALBOCICLIB
     Dosage: 100 MG, CYCLIC (DAYS 1?21 Q (PER) 28 DAYS)
     Route: 048
     Dates: start: 20190722, end: 2019
  5. IBRANCE [Suspect]
     Active Substance: PALBOCICLIB
     Dosage: UNK
     Dates: start: 201906

REACTIONS (7)
  - Anxiety [Recovered/Resolved]
  - Panic attack [Unknown]
  - Neutropenia [Unknown]
  - Pneumothorax [Unknown]
  - Fatigue [Unknown]
  - Initial insomnia [Unknown]
  - Mental fatigue [Unknown]
